FAERS Safety Report 5484957-6 (Version None)
Quarter: 2007Q4

REPORT INFORMATION
  Report Type: 
  Country: None (occurrence: None)
  Receive Date: 20071011
  Receipt Date: 20071002
  Transmission Date: 20080405
  Serious: Yes (Other)
  Sender: FDA-Public Use
  Company Number: OSCN-PR-0710S-0380

PATIENT
  Age: 66 Year
  Sex: Male

DRUGS (2)
  1. OMNISCAN [Suspect]
     Indication: DRUG USE FOR UNKNOWN INDICATION
     Dosage: SIX MRIS BETWEEN 30-JUL-2003 AND 23-JAN-2005, I.V.
     Route: 042
  2. EPOETIN ALFA [Concomitant]

REACTIONS (7)
  - CELLULITIS [None]
  - CYST [None]
  - INDURATION [None]
  - LIMB DISCOMFORT [None]
  - MUSCLE ATROPHY [None]
  - NEPHROGENIC SYSTEMIC FIBROSIS [None]
  - SEROMA [None]
